FAERS Safety Report 5836210-6 (Version None)
Quarter: 2008Q3

REPORT INFORMATION
  Report Type: 
  Country: None (occurrence: None)
  Receive Date: 20080805
  Receipt Date: 20080723
  Transmission Date: 20090109
  Serious: Yes (Other)
  Sender: FDA-Public Use
  Company Number: PAR_02273_2008

PATIENT
  Sex: Female
  Weight: 49.8957 kg

DRUGS (10)
  1. PROPRANOLOL HCL [Suspect]
     Indication: HEART RATE INCREASED
     Dosage: (60 MG BID ORAL)
     Route: 048
     Dates: start: 20070101, end: 20070101
  2. PROPRANOLOL HCL [Suspect]
     Indication: HYPERTENSION
     Dosage: (60 MG BID ORAL)
     Route: 048
     Dates: start: 20070101, end: 20070101
  3. PROPRANOLOL HCL [Suspect]
     Indication: HEART RATE INCREASED
     Dosage: (60 MG QD ORAL), (60 MG QD ORAL), (60 MG BID ORAL)
     Route: 048
     Dates: start: 20070101, end: 20070101
  4. PROPRANOLOL HCL [Suspect]
     Indication: HYPERTENSION
     Dosage: (60 MG QD ORAL), (60 MG QD ORAL), (60 MG BID ORAL)
     Route: 048
     Dates: start: 20070101, end: 20070101
  5. PROPRANOLOL HCL [Suspect]
     Indication: HEART RATE INCREASED
     Dosage: (60 MG QD ORAL), (60 MG QD ORAL), (60 MG BID ORAL)
     Route: 048
     Dates: start: 20080101, end: 20080101
  6. PROPRANOLOL HCL [Suspect]
     Indication: HYPERTENSION
     Dosage: (60 MG QD ORAL), (60 MG QD ORAL), (60 MG BID ORAL)
     Route: 048
     Dates: start: 20080101, end: 20080101
  7. PROPRANOLOL HCL [Suspect]
     Indication: HEART RATE INCREASED
     Dosage: (60 MG QD ORAL), (60 MG QD ORAL), (60 MG BID ORAL)
     Route: 048
     Dates: start: 20080101
  8. PROPRANOLOL HCL [Suspect]
     Indication: HYPERTENSION
     Dosage: (60 MG QD ORAL), (60 MG QD ORAL), (60 MG BID ORAL)
     Route: 048
     Dates: start: 20080101
  9. VALIUM [Concomitant]
  10. NALTREXONE HYDROCHLORIDE [Concomitant]

REACTIONS (3)
  - BLOOD PRESSURE INCREASED [None]
  - MEDICATION RESIDUE [None]
  - PHARMACEUTICAL PRODUCT COMPLAINT [None]
